FAERS Safety Report 5631064-5 (Version None)
Quarter: 2008Q1

REPORT INFORMATION
  Report Type: 
  Country: None (occurrence: None)
  Receive Date: 20080131
  Receipt Date: 20071116
  Transmission Date: 20080703
  Serious: No
  Sender: FDA-Public Use
  Company Number: 163-21880-07111070

PATIENT
  Age: 65 Year
  Sex: Male
  Weight: 92.9874 kg

DRUGS (9)
  1. REVLIMID [Suspect]
     Indication: MULTIPLE MYELOMA
     Dosage: 10 MG, 1 IN 1 D, ORAL
     Route: 048
     Dates: start: 20070830
  2. VICODIN [Concomitant]
  3. COUMADIN [Concomitant]
  4. BACTRIM DS [Concomitant]
  5. BACLOFEN [Concomitant]
  6. SOMA [Concomitant]
  7. SURFAK (DOCUSATE CALCIUM) [Concomitant]
  8. LEVOTHYROXINE SODIUM [Concomitant]
  9. AREDIA [Concomitant]

REACTIONS (1)
  - FATIGUE [None]
